FAERS Safety Report 7522502-1 (Version None)
Quarter: 2011Q2

REPORT INFORMATION
  Report Type: 
  Country: None (occurrence: None)
  Receive Date: 20110603
  Receipt Date: 20110525
  Transmission Date: 20111010
  Serious: Yes (Other)
  Sender: FDA-Public Use
  Company Number: CA-JNJFOC-20110300332

PATIENT
  Sex: Male
  Weight: 71 kg

DRUGS (13)
  1. GOLIMUMAB [Suspect]
     Route: 058
     Dates: start: 20061005
  2. FOLIC ACID [Concomitant]
     Route: 048
     Dates: start: 20060915
  3. FINASTERIDE [Concomitant]
     Route: 048
     Dates: start: 20090514
  4. GOLIMUMAB [Suspect]
     Indication: RHEUMATOID ARTHRITIS
     Route: 058
     Dates: start: 20101125
  5. EXTRA STRENGTH TYLENOL [Concomitant]
     Route: 048
     Dates: start: 20000101
  6. CRESTOR [Concomitant]
     Route: 048
     Dates: start: 20090720
  7. HYDROCHLOROTHIAZIDE [Concomitant]
     Route: 048
     Dates: start: 20100430
  8. METAMUCIL-2 [Concomitant]
     Route: 048
     Dates: start: 20091221
  9. SURFAK [Concomitant]
     Route: 048
     Dates: start: 20100126
  10. METHOTREXATE [Concomitant]
     Route: 048
     Dates: start: 20080609
  11. METHOTREXATE [Suspect]
     Indication: RHEUMATOID ARTHRITIS
     Route: 048
     Dates: start: 20060918, end: 20071001
  12. PREDNISONE [Concomitant]
     Route: 048
     Dates: start: 20081216
  13. DIDROCAL [Concomitant]
     Route: 048
     Dates: start: 20010101

REACTIONS (1)
  - GASTRIC CANCER [None]
